FAERS Safety Report 9049867 (Version 1)
Quarter: 2013Q1

REPORT INFORMATION
  Report Type: Spontaneous
  Country: US (occurrence: US)
  Receive Date: 20130205
  Receipt Date: 20130205
  Transmission Date: 20140127
  Serious: No
  Sender: FDA-Public Use
  Company Number: US-PFIZER INC-2013040996

PATIENT
  Age: 58 Year
  Sex: Female
  Weight: 65.3 kg

DRUGS (3)
  1. FLECTOR [Suspect]
     Indication: PROCEDURAL PAIN
     Dosage: UNK
     Dates: start: 20130129
  2. OXYCODONE [Concomitant]
     Indication: SPINAL PAIN
     Dosage: 15 MG, 3X/DAY
  3. SYNTHROID [Concomitant]
     Dosage: 50 UG, 1X/DAY

REACTIONS (2)
  - Expired drug administered [Unknown]
  - Drug ineffective [Unknown]
